FAERS Safety Report 9539774 (Version 1)
Quarter: 2013Q3

REPORT INFORMATION
  Report Type: Spontaneous
  Country: CA (occurrence: CA)
  Receive Date: 20130920
  Receipt Date: 20130920
  Transmission Date: 20140515
  Serious: Yes (Death, Life-Threatening, Hospitalization)
  Sender: FDA-Public Use
  Company Number: CA-ROCHE-1273396

PATIENT
  Age: 62 Year
  Sex: Female

DRUGS (9)
  1. RITUXAN [Suspect]
     Indication: PRODUCT USED FOR UNKNOWN INDICATION
     Route: 065
  2. RITUXAN [Suspect]
     Route: 065
  3. GEMZAR [Suspect]
     Indication: PRODUCT USED FOR UNKNOWN INDICATION
     Dosage: THERAPY DURATION: 244 DAYS
     Route: 042
  4. VINCRISTINE SULFATE [Suspect]
     Indication: PRODUCT USED FOR UNKNOWN INDICATION
     Dosage: DRUG REPORTED VINCRISTINE SULFATE INJECTION USP
     Route: 065
  5. GEMCITABINE [Suspect]
     Indication: PRODUCT USED FOR UNKNOWN INDICATION
     Dosage: DRUG REPORTED GEMCITABINE FOR INJECTION, USP
     Route: 065
  6. GEMCITABINE [Suspect]
     Dosage: THERAPY DURATION: 244.0 DAYS
     Route: 065
  7. GEMCITABINE [Suspect]
     Route: 065
  8. CYCLOPHOSPHAMIDE [Suspect]
     Indication: PRODUCT USED FOR UNKNOWN INDICATION
     Route: 065
  9. RED BLOOD CELLS [Concomitant]
     Route: 065

REACTIONS (17)
  - Herpes zoster [Fatal]
  - Performance status decreased [Fatal]
  - Psychiatric symptom [Fatal]
  - Splenectomy [Fatal]
  - Convulsion [Fatal]
  - Blood pressure systolic increased [Fatal]
  - Haptoglobin decreased [Fatal]
  - Haemoglobin decreased [Fatal]
  - Generalised oedema [Fatal]
  - Dyspnoea exertional [Fatal]
  - Blood lactate dehydrogenase increased [Fatal]
  - Asthenia [Fatal]
  - Thrombotic thrombocytopenic purpura [Fatal]
  - Blood creatine increased [Recovered/Resolved]
  - Blood pressure increased [Recovered/Resolved]
  - Microangiopathic haemolytic anaemia [Recovered/Resolved]
  - Reticulocyte count increased [Recovered/Resolved]
